FAERS Safety Report 8446713-6 (Version None)
Quarter: 2012Q2

REPORT INFORMATION
  Report Type: 
  Country: None (occurrence: None)
  Receive Date: 20120619
  Receipt Date: 20120605
  Transmission Date: 20120825
  Serious: No
  Sender: FDA-Public Use
  Company Number: US-BIOGENIDEC-2012BI020520

PATIENT
  Sex: Female
  Weight: 68 kg

DRUGS (2)
  1. METHYLPHENIDATE [Concomitant]
     Indication: PRODUCT USED FOR UNKNOWN INDICATION
  2. TYSABRI [Suspect]
     Indication: MULTIPLE SCLEROSIS
     Route: 042
     Dates: start: 20101221

REACTIONS (15)
  - HYPOREFLEXIA [None]
  - DECREASED VIBRATORY SENSE [None]
  - VISUAL ACUITY REDUCED [None]
  - OPTIC NEURITIS [None]
  - GENERAL SYMPTOM [None]
  - SPINAL CORD DISORDER [None]
  - TYPE 2 DIABETES MELLITUS [None]
  - FATIGUE [None]
  - SENSORY DISTURBANCE [None]
  - PAIN [None]
  - PARAESTHESIA [None]
  - CEREBELLAR SYNDROME [None]
  - HYPOAESTHESIA [None]
  - MOOD DISORDER DUE TO A GENERAL MEDICAL CONDITION [None]
  - CENTRAL NERVOUS SYSTEM LESION [None]
